FAERS Safety Report 9001125 (Version 4)
Quarter: 2013Q1

REPORT INFORMATION
  Report Type: Spontaneous
  Country: GB (occurrence: GB)
  Receive Date: 20130107
  Receipt Date: 20130318
  Transmission Date: 20140127
  Serious: No
  Sender: FDA-Public Use
  Company Number: GB-JNJFOC-20121212784

PATIENT
  Age: 79 None
  Sex: Female
  Weight: 63.5 kg

DRUGS (22)
  1. XARELTO [Suspect]
     Indication: ATRIAL FIBRILLATION
     Route: 048
     Dates: start: 201209, end: 201210
  2. XARELTO [Suspect]
     Indication: ATRIAL FIBRILLATION
     Route: 048
     Dates: start: 20121123
  3. XARELTO [Suspect]
     Indication: ATRIAL FIBRILLATION
     Route: 048
     Dates: start: 20120831, end: 201209
  4. XARELTO [Suspect]
     Indication: CEREBROVASCULAR ACCIDENT PROPHYLAXIS
     Route: 048
     Dates: start: 20120831, end: 201209
  5. XARELTO [Suspect]
     Indication: CEREBROVASCULAR ACCIDENT PROPHYLAXIS
     Route: 048
     Dates: start: 20121123
  6. XARELTO [Suspect]
     Indication: CEREBROVASCULAR ACCIDENT PROPHYLAXIS
     Route: 048
     Dates: start: 201209, end: 201210
  7. CLOTRIMAZOLE [Concomitant]
     Route: 065
  8. GLYCERYL TRINITRATE [Concomitant]
     Route: 065
  9. PARACETAMOL [Concomitant]
     Route: 065
  10. CLOBETASONE [Concomitant]
     Route: 065
  11. DERMOL 500 [Concomitant]
     Route: 065
  12. ESOMEPRAZOLE [Concomitant]
     Route: 065
  13. ISOSORBIDE MONONITRATE [Concomitant]
     Route: 065
  14. LOSARTAN [Concomitant]
     Route: 065
  15. MOVICOL [Concomitant]
     Route: 065
  16. NICORANDIL [Concomitant]
     Route: 062
  17. VERAPAMIL [Concomitant]
     Route: 065
  18. CETIRIZIN [Concomitant]
     Route: 065
  19. CEPHALEXIN [Concomitant]
     Route: 065
  20. VITAMIN D3 [Concomitant]
     Route: 065
  21. VISCOTEARS [Concomitant]
     Route: 065
  22. BECLOMETASONE [Concomitant]
     Route: 065

REACTIONS (15)
  - Chest pain [Recovering/Resolving]
  - Musculoskeletal chest pain [Recovering/Resolving]
  - Pain in extremity [Recovered/Resolved]
  - Lip dry [Recovering/Resolving]
  - Nasal dryness [Recovering/Resolving]
  - Dry skin [Recovering/Resolving]
  - Oedema peripheral [Recovering/Resolving]
  - Weight increased [Recovering/Resolving]
  - Pain in extremity [Unknown]
  - Pruritus [Unknown]
  - Visual acuity reduced [Unknown]
  - Dizziness [Recovered/Resolved]
  - Gout [Unknown]
  - Cough [Unknown]
  - Dry eye [Unknown]
